FAERS Safety Report 21525113 (Version 1)
Quarter: 2022Q4

REPORT INFORMATION
  Report Type: Spontaneous
  Country: PT (occurrence: PT)
  Receive Date: 20221030
  Receipt Date: 20221030
  Transmission Date: 20230112
  Serious: Yes (Hospitalization, Other)
  Sender: FDA-Public Use
  Company Number: PT-BIOQ Pharma Ltd-BIQ202210-000018

PATIENT
  Age: 28 Year
  Sex: Female

DRUGS (3)
  1. ROPIVACAINE [Suspect]
     Active Substance: ROPIVACAINE
     Indication: Labour pain
     Dosage: UNK(EPIDURAL BOLUSES OF ROPIVACAINE AND SUFENTANYL)
     Route: 008
  2. TRAMADOL [Suspect]
     Active Substance: TRAMADOL
     Indication: Labour pain
     Dosage: UNK
     Route: 042
  3. FENTANYL [Suspect]
     Active Substance: FENTANYL
     Indication: Labour pain
     Dosage: UNK(EPIDURAL BOLUSES OF ROPIVACAINE AND SUFENTANYL)
     Route: 008

REACTIONS (4)
  - Generalised tonic-clonic seizure [Recovered/Resolved]
  - Respiratory arrest [Recovered/Resolved]
  - Drug ineffective [Unknown]
  - Exposure during pregnancy [Unknown]
